FAERS Safety Report 17113550 (Version 2)
Quarter: 2020Q1

REPORT INFORMATION
  Report Type: Spontaneous
  Country: US (occurrence: US)
  Receive Date: 20191205
  Receipt Date: 20200204
  Transmission Date: 20200409
  Serious: Yes (Other)
  Sender: FDA-Public Use
  Company Number: US-009507513-1912USA001753

PATIENT
  Age: 19 Year
  Sex: Female
  Weight: 80.27 kg

DRUGS (1)
  1. NEXPLANON [Suspect]
     Active Substance: ETONOGESTREL
     Indication: CONTRACEPTION
     Dosage: 1 IMPLANT EVERY 3 YEARS
     Route: 059
     Dates: start: 20190312, end: 20191203

REACTIONS (10)
  - Skin discolouration [Unknown]
  - Skin hyperpigmentation [Unknown]
  - Unintended pregnancy [Not Recovered/Not Resolved]
  - Pregnancy with implant contraceptive [Not Recovered/Not Resolved]
  - Implant site pruritus [Unknown]
  - Pain [Unknown]
  - Device deployment issue [Recovered/Resolved]
  - Skin irritation [Unknown]
  - Device breakage [Recovered/Resolved]
  - Administration site scab [Recovered/Resolved]

NARRATIVE: CASE EVENT DATE: 2019
